FAERS Safety Report 9240250 (Version 1)
Quarter: 2013Q2

REPORT INFORMATION
  Report Type: Report from Study
  Country: KR (occurrence: KR)
  Receive Date: 20130418
  Receipt Date: 20130418
  Transmission Date: 20140414
  Serious: Yes (Hospitalization)
  Sender: FDA-Public Use
  Company Number: KR-NAPPMUNDI-DEU-2013-0011293

PATIENT
  Age: 53 Year
  Sex: Female
  Weight: 83 kg

DRUGS (8)
  1. OXYCODONE HYDROCHLORIDE [Suspect]
     Indication: PAIN IN EXTREMITY
     Dosage: 80 MG, DAILY
     Route: 048
  2. FENTANYL CITRATE [Suspect]
     Dosage: 16.8 MG, DAILY
     Dates: start: 20120831
  3. FENTANYL CITRATE [Suspect]
     Dosage: 4.2 MG, DAILY
     Dates: start: 20120824, end: 20120903
  4. VEMURAFENIB [Suspect]
     Indication: MALIGNANT MELANOMA
     Dosage: 960 MG, BID
     Route: 048
     Dates: start: 20120831
  5. TARGIN PR TAB [Concomitant]
     Dosage: 2 DF, DAILY
     Dates: start: 20120906
  6. MORPHINE SULFATE INJECTABLE [Concomitant]
     Indication: PAIN IN EXTREMITY
     Dosage: UNK
     Route: 042
  7. NIMESULIDE [Concomitant]
     Dosage: UNK
  8. MAGNESIUM [Concomitant]

REACTIONS (1)
  - Delirium [Recovered/Resolved]
